FAERS Safety Report 14977087 (Version 2)
Quarter: 2018Q2

REPORT INFORMATION
  Report Type: Spontaneous
  Country: US (occurrence: US)
  Receive Date: 20180606
  Receipt Date: 20180628
  Transmission Date: 20180711
  Serious: Yes (Other)
  Sender: FDA-Public Use
  Company Number: US-BEH-2018091182

PATIENT
  Age: 15 Year
  Sex: Male

DRUGS (2)
  1. HIZENTRA [Suspect]
     Active Substance: HUMAN IMMUNOGLOBULIN G
     Dosage: 7 UNK, UNK
     Route: 058
     Dates: start: 20180521
  2. HIZENTRA [Suspect]
     Active Substance: HUMAN IMMUNOGLOBULIN G
     Indication: HYPOGAMMAGLOBULINAEMIA
     Dosage: 7 G, UNK
     Route: 058
     Dates: start: 20170920

REACTIONS (3)
  - Pyrexia [Unknown]
  - Cough [Unknown]
  - Viral infection [Unknown]

NARRATIVE: CASE EVENT DATE: 20180522
